FAERS Safety Report 8840514 (Version 9)
Quarter: 2013Q1

REPORT INFORMATION
  Report Type: Spontaneous
  Country: US (occurrence: US)
  Receive Date: 20121015
  Receipt Date: 20130326
  Transmission Date: 20140127
  Serious: Yes (Death, Hospitalization)
  Sender: FDA-Public Use
  Company Number: US-B.I. PHARMACEUTICALS,INC./RIDGEFIELD-2012-BP-25384BP

PATIENT
  Sex: Female
  Weight: 68.04 kg

DRUGS (14)
  1. PRADAXA [Suspect]
     Indication: ANTICOAGULANT THERAPY
     Dosage: 300 MG
     Dates: start: 20101201
  2. PRADAXA [Suspect]
     Indication: ATRIAL FIBRILLATION
     Dosage: 150 MG
     Dates: end: 20111226
  3. ASPIRIN [Concomitant]
     Dosage: 81 MG
     Route: 048
  4. BELLA ALK/PB [Concomitant]
     Route: 048
  5. CARDIZEM [Concomitant]
     Dosage: 240 MG
     Route: 048
  6. CLONAZEPAM [Concomitant]
     Dosage: 0.5 MG
     Route: 048
  7. DIOVAN HCT [Concomitant]
     Route: 048
  8. GLUCOSAMINE CHONDROITIN [Concomitant]
     Route: 048
  9. HYDROCODONE ACETAMINOPHEN [Concomitant]
     Route: 048
  10. METRONIDAZOLE [Concomitant]
     Route: 048
  11. MOBIC [Concomitant]
     Route: 048
  12. SULFAMETHIAZOLE [Concomitant]
     Dosage: 2 G
     Route: 048
  13. TOVIAZ [Concomitant]
     Dosage: 4 MG
     Route: 048
  14. ZYRTEC [Concomitant]
     Dosage: 10 MG
     Route: 048

REACTIONS (5)
  - Septic shock [Fatal]
  - Colitis ischaemic [Fatal]
  - Gastrointestinal haemorrhage [Fatal]
  - Disseminated intravascular coagulation [Fatal]
  - Contusion [Unknown]
